FAERS Safety Report 20331587 (Version 1)
Quarter: 2022Q1

REPORT INFORMATION
  Report Type: Spontaneous
  Country: US (occurrence: None)
  Receive Date: 20220112
  Receipt Date: 20220112
  Transmission Date: 20220423
  Serious: Yes (Death)
  Sender: FDA-Public Use
  Company Number: None

PATIENT
  Age: 67 Year
  Sex: Female

DRUGS (1)
  1. OCTREOTIDE ACETATE [Suspect]
     Active Substance: OCTREOTIDE ACETATE
     Indication: Diarrhoea
     Dosage: FREQUENCY : EVERY 12 HOURS;?
     Route: 058
     Dates: start: 20210910, end: 20211230

REACTIONS (1)
  - Death [None]

NARRATIVE: CASE EVENT DATE: 20211230
